FAERS Safety Report 5635885-4 (Version None)
Quarter: 2008Q1

REPORT INFORMATION
  Report Type: 
  Country: None (occurrence: None)
  Receive Date: 20080221
  Receipt Date: 20080206
  Transmission Date: 20080703
  Serious: Yes (Hospitalization)
  Sender: FDA-Public Use
  Company Number: 2007BI014342

PATIENT
  Age: 30 Year
  Sex: Female
  Weight: 69 kg

DRUGS (4)
  1. AVONEX [Suspect]
     Indication: MULTIPLE SCLEROSIS
     Dosage: 30 UG; QW; IM
     Route: 030
     Dates: start: 20070420
  2. METFORMIN HCL [Concomitant]
  3. RIZATRIPTAN BENZOATE [Concomitant]
  4. NOVALGIN [Concomitant]

REACTIONS (2)
  - DYSFUNCTIONAL UTERINE BLEEDING [None]
  - INFLUENZA LIKE ILLNESS [None]
